FAERS Safety Report 9646496 (Version 1)
Quarter: 2013Q4

REPORT INFORMATION
  Report Type: Spontaneous
  Country: US (occurrence: US)
  Receive Date: 20131025
  Receipt Date: 20131025
  Transmission Date: 20140711
  Serious: Yes (Hospitalization, Other)
  Sender: FDA-Public Use
  Company Number: US-GILEAD-2013-0086265

PATIENT
  Sex: Female

DRUGS (18)
  1. LETAIRIS [Suspect]
     Indication: PRODUCT USED FOR UNKNOWN INDICATION
     Dates: start: 20130816, end: 20130920
  2. PLAVIX [Concomitant]
  3. ATORVASTATIN [Concomitant]
  4. ASPIRIN [Concomitant]
  5. SODIUM BICARBONATE [Concomitant]
  6. HYDROCODONE/APAP [Concomitant]
  7. METOPROLOL TARTRATE [Concomitant]
  8. FOLIC ACID [Concomitant]
  9. SENNOSIDES A+B [Concomitant]
  10. OXYBUTYNIN CHLORIDE [Concomitant]
  11. FELODIPINE [Concomitant]
  12. OMEPRAZOLE [Concomitant]
  13. LANTUS [Concomitant]
  14. FERROUS SULFATE [Concomitant]
  15. NITROGLYCERIN [Concomitant]
  16. NYSTATIN [Concomitant]
  17. LEVOTHYROXINE [Concomitant]
  18. VITAMINS NOS [Concomitant]

REACTIONS (2)
  - Pulmonary arterial hypertension [Unknown]
  - Dyspnoea [Unknown]
